FAERS Safety Report 15376918 (Version 1)
Quarter: 2018Q3

REPORT INFORMATION
  Report Type: Spontaneous
  Country: GB (occurrence: GB)
  Receive Date: 20180913
  Receipt Date: 20180913
  Transmission Date: 20181010
  Serious: Yes (Other)
  Sender: FDA-Public Use
  Company Number: GB-SUN PHARMACEUTICAL INDUSTRIES LTD-2018RR-183119

PATIENT
  Sex: Female

DRUGS (3)
  1. SERTRALINE 50 MG FILM?COATED TABLETS [Suspect]
     Active Substance: SERTRALINE HYDROCHLORIDE
     Indication: PANIC ATTACK
  2. SERTRALINE 50 MG FILM?COATED TABLETS [Suspect]
     Active Substance: SERTRALINE HYDROCHLORIDE
     Indication: ANXIETY
  3. SERTRALINE 50 MG FILM?COATED TABLETS [Suspect]
     Active Substance: SERTRALINE HYDROCHLORIDE
     Indication: PALPITATIONS
     Dosage: UNK
     Route: 065

REACTIONS (6)
  - Drug ineffective [Unknown]
  - Panic attack [Unknown]
  - Condition aggravated [Unknown]
  - Product substitution issue [Unknown]
  - Anxiety [Unknown]
  - Palpitations [Recovering/Resolving]

NARRATIVE: CASE EVENT DATE: 201808
